FAERS Safety Report 10589115 (Version 2)
Quarter: 2015Q3

REPORT INFORMATION
  Report Type: Spontaneous
  Country: US (occurrence: US)
  Receive Date: 20141118
  Receipt Date: 20150818
  Transmission Date: 20151125
  Serious: No
  Sender: FDA-Public Use
  Company Number: US-GILEAD-2014-0122681

PATIENT
  Sex: Female

DRUGS (4)
  1. LETAIRIS [Suspect]
     Active Substance: AMBRISENTAN
     Dates: start: 20140124
  2. ORENITRAM [Concomitant]
     Active Substance: TREPROSTINIL
  3. WARFARIN [Concomitant]
     Active Substance: WARFARIN
  4. ADCIRCA [Concomitant]
     Active Substance: TADALAFIL

REACTIONS (3)
  - Nausea [Unknown]
  - Headache [Unknown]
  - Vomiting [Unknown]
